FAERS Safety Report 21890879 (Version 1)
Quarter: 2023Q1

REPORT INFORMATION
  Report Type: Spontaneous
  Country: CA (occurrence: US)
  Receive Date: 20230120
  Receipt Date: 20230120
  Transmission Date: 20230417
  Serious: No
  Sender: FDA-Public Use
  Company Number: CA-JUBILANT PHARMA LTD-2022US000665

PATIENT
  Sex: Female

DRUGS (1)
  1. DRAXIMAGE MDP-25 [Suspect]
     Active Substance: TECHNETIUM TC-99M MEDRONATE
     Indication: Product used for unknown indication
     Dosage: UNK
     Dates: start: 20230105, end: 20230105

REACTIONS (1)
  - Pain [Unknown]

NARRATIVE: CASE EVENT DATE: 20230105
